FAERS Safety Report 7591067-0 (Version None)
Quarter: 2011Q3

REPORT INFORMATION
  Report Type: 
  Country: None (occurrence: None)
  Receive Date: 20110705
  Receipt Date: 20110617
  Transmission Date: 20111222
  Serious: Yes (Hospitalization)
  Sender: FDA-Public Use
  Company Number: FR-MERCK-1107FRA00011

PATIENT
  Age: 65 Year
  Sex: Male

DRUGS (3)
  1. COSOPT [Suspect]
     Indication: GLAUCOMA
     Route: 047
     Dates: start: 20010101, end: 20110601
  2. LATANOPROST [Suspect]
     Indication: GLAUCOMA
     Route: 047
     Dates: start: 20010101, end: 20110601
  3. ACETAZOLAMIDE [Suspect]
     Indication: GLAUCOMA
     Route: 065
     Dates: start: 20110601, end: 20110601

REACTIONS (3)
  - RETINAL DETACHMENT [None]
  - GLAUCOMA [None]
  - INTRAOCULAR PRESSURE DECREASED [None]
